FAERS Safety Report 6077695-2 (Version None)
Quarter: 2009Q1

REPORT INFORMATION
  Report Type: 
  Country: None (occurrence: None)
  Receive Date: 20090213
  Receipt Date: 20090204
  Transmission Date: 20090719
  Serious: Yes (Life-Threatening, Hospitalization, Disabling)
  Sender: FDA-Public Use
  Company Number: FR-ROCHE-606724

PATIENT
  Sex: Female
  Weight: 40.9 kg

DRUGS (9)
  1. ENFUVIRTIDE [Suspect]
     Indication: HIV INFECTION
     Dosage: FREQUENCY REPORTED AS 2/DAY
     Route: 058
     Dates: start: 20081114
  2. SUSTIVA [Suspect]
     Indication: HIV INFECTION
     Dosage: FREQUENCY REPORTED AS DAY
     Route: 065
     Dates: start: 20081114
  3. TRUVADA [Suspect]
     Indication: HIV INFECTION
     Route: 065
     Dates: start: 20081114
  4. RIFATER [Suspect]
     Indication: HIV INFECTION
     Route: 065
     Dates: start: 20081114
  5. MYAMBUTOL [Suspect]
     Indication: HIV INFECTION
     Route: 065
     Dates: start: 20081114
  6. BACTRIM [Concomitant]
     Dates: start: 20081106
  7. SPECIAFOLDINE [Concomitant]
     Dates: start: 20081106
  8. SOLU-MEDROL [Concomitant]
     Dates: start: 20081201
  9. SOLUPRED [Concomitant]
     Dates: start: 20081201

REACTIONS (2)
  - GENERAL PHYSICAL HEALTH DETERIORATION [None]
  - PYREXIA [None]
